FAERS Safety Report 8838064 (Version 3)
Quarter: 2012Q4

REPORT INFORMATION
  Report Type: Report from Study
  Country: US (occurrence: US)
  Receive Date: 20121012
  Receipt Date: 20121105
  Transmission Date: 20130627
  Serious: Yes (Hospitalization)
  Sender: FDA-Public Use
  Company Number: US-EISAI INC-E7389-03095-CLI-US

PATIENT
  Age: 61 Year
  Sex: Female
  Weight: 95 kg

DRUGS (9)
  1. HALAVEN [Suspect]
     Indication: HER-2 POSITIVE BREAST CANCER
     Route: 041
     Dates: start: 20120925, end: 20121004
  2. HALAVEN [Suspect]
     Route: 041
     Dates: start: 201210
  3. PARAPLATIN [Suspect]
     Indication: HER-2 POSITIVE BREAST CANCER
     Route: 041
     Dates: start: 20120925, end: 20121004
  4. PARAPLATIN [Suspect]
     Route: 041
     Dates: start: 201210
  5. HERCEPTIN [Concomitant]
     Indication: HER-2 POSITIVE BREAST CANCER
     Route: 041
     Dates: start: 20120925
  6. BYSTOLIC [Concomitant]
     Indication: HYPERTENSION
     Route: 048
     Dates: start: 20120201
  7. DIOVAN [Concomitant]
     Indication: HYPERTENSION
     Dosage: 160/25mg
     Route: 048
     Dates: start: 20120201
  8. ZOFRAN [Concomitant]
     Indication: NAUSEA
     Route: 048
     Dates: start: 20120925
  9. ZOFRAN [Concomitant]
     Indication: VOMITING

REACTIONS (2)
  - Renal failure acute [Recovered/Resolved]
  - Neutrophil count decreased [Recovered/Resolved]
